FAERS Safety Report 13305084 (Version 3)
Quarter: 2017Q2

REPORT INFORMATION
  Report Type: Spontaneous
  Country: US (occurrence: US)
  Receive Date: 20170308
  Receipt Date: 20170504
  Transmission Date: 20170830
  Serious: No
  Sender: FDA-Public Use
  Company Number: US-PFIZER INC-2017100825

PATIENT
  Age: 86 Year
  Sex: Female
  Weight: 100 kg

DRUGS (11)
  1. PHENOBARBITAL. [Concomitant]
     Active Substance: PHENOBARBITAL
     Indication: SEIZURE
     Dosage: 60.5 MG, 2X/DAY (BEFORE BED)
  2. RAMIPRIL. [Concomitant]
     Active Substance: RAMIPRIL
     Indication: HEART VALVE INCOMPETENCE
  3. SYNTHROID [Concomitant]
     Active Substance: LEVOTHYROXINE SODIUM
     Indication: THYROID DISORDER
     Dosage: LOW DOSE, 1X/DAY
  4. LYRICA [Suspect]
     Active Substance: PREGABALIN
     Indication: POST HERPETIC NEURALGIA
  5. RAMIPRIL. [Concomitant]
     Active Substance: RAMIPRIL
     Indication: CARDIAC MURMUR
     Dosage: LOW DOSE, 1X/DAY
  6. LYRICA [Suspect]
     Active Substance: PREGABALIN
     Indication: ABDOMINAL PAIN
     Dosage: 75 MG, 2X/DAY
     Route: 048
     Dates: start: 20170217, end: 20170217
  7. MULTI VITAMIN [Concomitant]
     Active Substance: VITAMINS
     Indication: ROUTINE HEALTH MAINTENANCE
     Dosage: 1 DF, DAILY
  8. FISH OIL [Concomitant]
     Active Substance: FISH OIL
     Dosage: 1 DF, DAILY
  9. LYRICA [Suspect]
     Active Substance: PREGABALIN
     Indication: HERPES ZOSTER
  10. FOCUS [Concomitant]
     Indication: MACULAR DEGENERATION
     Dosage: 1 DF, DAILY
  11. BIOTIN [Concomitant]
     Active Substance: BIOTIN
     Indication: ALOPECIA
     Dosage: 5000 TO 10000 ONCE A DAY (SOME ARE TABLETS AND OTHER PILLS)

REACTIONS (3)
  - Gait disturbance [Recovered/Resolved]
  - Drug dispensing error [Unknown]
  - Feeling abnormal [Recovered/Resolved]

NARRATIVE: CASE EVENT DATE: 20170218
